FAERS Safety Report 13464509 (Version 1)
Quarter: 2017Q2

REPORT INFORMATION
  Report Type: Spontaneous
  Country: US (occurrence: US)
  Receive Date: 20170420
  Receipt Date: 20170420
  Transmission Date: 20170830
  Serious: Yes (Other)
  Sender: FDA-Public Use
  Company Number: US-ROCHE-662545

PATIENT
  Age: 19 Year
  Sex: Male
  Weight: 77.1 kg

DRUGS (5)
  1. ACCUTANE [Suspect]
     Active Substance: ISOTRETINOIN
     Indication: ACNE
     Route: 048
  2. IBUPROFEN. [Concomitant]
     Active Substance: IBUPROFEN
     Dosage: 4 PER YEAR
     Route: 065
  3. ACCUTANE [Suspect]
     Active Substance: ISOTRETINOIN
     Route: 048
     Dates: start: 20030821, end: 20031002
  4. ACCUTANE [Suspect]
     Active Substance: ISOTRETINOIN
     Dosage: RESTARTED AFTER TWO WEEK GAP
     Route: 048
  5. ACCUTANE [Suspect]
     Active Substance: ISOTRETINOIN
     Route: 048
     Dates: start: 20031217, end: 200401

REACTIONS (5)
  - Colitis ulcerative [Unknown]
  - Proctitis [Unknown]
  - Blood triglycerides increased [Unknown]
  - Inflammatory bowel disease [Unknown]
  - Lip dry [Unknown]

NARRATIVE: CASE EVENT DATE: 20030820
